FAERS Safety Report 12519897 (Version 2)
Quarter: 2016Q3

REPORT INFORMATION
  Report Type: Spontaneous
  Country: JP (occurrence: JP)
  Receive Date: 20160701
  Receipt Date: 20160713
  Transmission Date: 20161109
  Serious: Yes (Other)
  Sender: FDA-Public Use
  Company Number: JP-ORION CORPORATION ORION PHARMA-ENT 2016-0118

PATIENT
  Sex: Female

DRUGS (6)
  1. COMTAN [Suspect]
     Active Substance: ENTACAPONE
     Indication: PARKINSON^S DISEASE
     Route: 048
  2. MENESIT [Concomitant]
     Active Substance: CARBIDOPA\LEVODOPA
     Dosage: ON 12TH HOSPITAL DAY 100 MG TABLET ADDED, ON 54TH DAY ANOTHER ONE 100 MG TABLET ADDED
     Route: 065
  3. MENESIT [Concomitant]
     Active Substance: CARBIDOPA\LEVODOPA
     Route: 065
  4. FP [Concomitant]
     Active Substance: SELEGILINE HYDROCHLORIDE
     Route: 065
  5. BOTOX [Concomitant]
     Active Substance: ONABOTULINUMTOXINA
     Dosage: 50 UNITS ON THE RIGHT SIDE AND 40 UNITS ON THE LEFT SIDE OF THE STERNOCLEIDOMASTOID MUSCLE, AND 10 U
     Route: 065
  6. DOMPERIDONE [Concomitant]
     Active Substance: DOMPERIDONE
     Route: 065

REACTIONS (2)
  - Back pain [Unknown]
  - Gait disturbance [Unknown]
